FAERS Safety Report 4448754-2 (Version None)
Quarter: 2004Q3

REPORT INFORMATION
  Report Type: 
  Country: None (occurrence: None)
  Receive Date: 20040909
  Receipt Date: 20040831
  Transmission Date: 20050211
  Serious: Yes (Other)
  Sender: FDA-Public Use
  Company Number: NLWYE008631AUG04

PATIENT
  Age: 34 Year
  Sex: Female

DRUGS (6)
  1. LEVONORGESTREL AND ETHINYL ESTRADIOL [Suspect]
     Dosage: 1 TABLET 1X PER 1 DAY ORAL
     Route: 048
     Dates: start: 20020101, end: 20040801
  2. XENICAL [Suspect]
     Indication: OBESITY
     Dosage: 120 MG 3X PER 1 DAY ORAL
     Route: 048
     Dates: start: 20040205, end: 20040801
  3. METFORMIN HCL [Concomitant]
  4. AVANDIA [Concomitant]
  5. NOVONORM (REPAGLINIDE) [Concomitant]
  6. XYZAL (LEVOCETIRIZINE) [Concomitant]

REACTIONS (2)
  - DRUG INTERACTION [None]
  - UNINTENDED PREGNANCY [None]
